FAERS Safety Report 17165638 (Version 1)
Quarter: 2019Q4

REPORT INFORMATION
  Report Type: Other
  Country: CA (occurrence: CA)
  Receive Date: 20191217
  Receipt Date: 20191217
  Transmission Date: 20200122
  Serious: Yes (Other)
  Sender: FDA-Public Use
  Company Number: CA-PFIZER INC-2019538564

PATIENT
  Age: 84 Month

DRUGS (4)
  1. CARBOPLATIN. [Suspect]
     Active Substance: CARBOPLATIN
     Indication: RETINOBLASTOMA
     Dosage: UNK
     Route: 065
  2. CICLOSPORIN [Suspect]
     Active Substance: CYCLOSPORINE
     Indication: DRUG RESISTANCE
     Dosage: UNK
     Route: 065
  3. TENIPOSIDE. [Concomitant]
     Active Substance: TENIPOSIDE
     Indication: RETINOBLASTOMA
     Dosage: UNK
     Route: 065
  4. VINCRISTINE SULFATE. [Suspect]
     Active Substance: VINCRISTINE SULFATE
     Indication: RETINOBLASTOMA
     Dosage: UNK
     Route: 065

REACTIONS (1)
  - Deafness [Unknown]
